FAERS Safety Report 24905319 (Version 2)
Quarter: 2025Q3

REPORT INFORMATION
  Report Type: Report from Study
  Country: US (occurrence: US)
  Receive Date: 20250130
  Receipt Date: 20250803
  Transmission Date: 20251021
  Serious: Yes (Other)
  Sender: ALEXION PHARMACEUTICALS
  Company Number: US-AstraZeneca-CH-00792316A

PATIENT
  Sex: Female

DRUGS (1)
  1. OLAPARIB [Suspect]
     Active Substance: OLAPARIB
     Indication: Ovarian cancer
     Dosage: 150 MILLIGRAM, BID
     Dates: start: 202412

REACTIONS (6)
  - Neuropathy peripheral [Unknown]
  - Depressed mood [Unknown]
  - Paraesthesia [Unknown]
  - Pelvic mass [Unknown]
  - Depression [Unknown]
  - Product dose omission issue [Unknown]
